FAERS Safety Report 6334482-5 (Version None)
Quarter: 2009Q3

REPORT INFORMATION
  Report Type: 
  Country: None (occurrence: None)
  Receive Date: 20090827
  Receipt Date: 20090817
  Transmission Date: 20100115
  Serious: Yes (Other)
  Sender: FDA-Public Use
  Company Number: 2009SP020855

PATIENT
  Age: 24 Year
  Sex: Female
  Weight: 71.2147 kg

DRUGS (1)
  1. NUVARING [Suspect]
     Indication: CONTRACEPTION
     Dosage: 1 DF, Q3W, VAG
     Route: 067
     Dates: start: 20070101

REACTIONS (2)
  - CONVULSION [None]
  - MENSTRUATION IRREGULAR [None]
